FAERS Safety Report 5401893-1 (Version None)
Quarter: 2007Q3

REPORT INFORMATION
  Report Type: 
  Country: None (occurrence: None)
  Receive Date: 20070731
  Receipt Date: 20070723
  Transmission Date: 20080115
  Serious: Yes (Other)
  Sender: FDA-Public Use
  Company Number: US-SHR-US-2007-016490

PATIENT
  Age: 29 Year
  Sex: Female
  Weight: 54 kg

DRUGS (1)
  1. MIRENA [Suspect]
     Indication: CONTRACEPTION
     Dosage: 20 A?G/DAY, CONT
     Route: 015
     Dates: start: 20070130, end: 20070524

REACTIONS (10)
  - ABDOMINAL PAIN [None]
  - ABDOMINAL PAIN LOWER [None]
  - DYSMENORRHOEA [None]
  - ENDOMETRIOSIS [None]
  - HAEMORRHAGIC OVARIAN CYST [None]
  - METRORRHAGIA [None]
  - PELVIC PAIN [None]
  - PELVIC PERITONEAL ADHESIONS [None]
  - PROCEDURAL PAIN [None]
  - VAGINAL SWELLING [None]
